FAERS Safety Report 19107439 (Version 1)
Quarter: 2021Q2

REPORT INFORMATION
  Report Type: Spontaneous
  Country: US (occurrence: US)
  Receive Date: 20210408
  Receipt Date: 20210408
  Transmission Date: 20210717
  Serious: Yes (Hospitalization)
  Sender: FDA-Public Use
  Company Number: None

PATIENT
  Age: 68 Year
  Sex: Female
  Weight: 50.6 kg

DRUGS (3)
  1. GEMCITABINE HYDROCHLORIDE. [Suspect]
     Active Substance: GEMCITABINE HYDROCHLORIDE
     Dates: end: 20210319
  2. RITUXIMAB (MOAB C2B8 ANTI CD20, CHIMERIC) [Suspect]
     Active Substance: RITUXIMAB
     Dates: end: 20210319
  3. ELOXATIN [Suspect]
     Active Substance: OXALIPLATIN
     Dates: end: 20210319

REACTIONS (13)
  - Pain in extremity [None]
  - Muscular weakness [None]
  - Bladder dilatation [None]
  - Spinal cord compression [None]
  - Ureteric obstruction [None]
  - Haematochezia [None]
  - Cauda equina syndrome [None]
  - Urinary tract infection [None]
  - Paraesthesia [None]
  - Intestinal fistula [None]
  - Urinary retention [None]
  - Pelvic mass [None]
  - Pain [None]

NARRATIVE: CASE EVENT DATE: 20210319
